FAERS Safety Report 8779597 (Version 1)
Quarter: 2012Q4

REPORT INFORMATION
  Report Type: 
  Country: SG (occurrence: SG)
  Receive Date: 20120911
  Receipt Date: 20120911
  Transmission Date: 20130627
  Serious: Yes (Other)
  Sender: FDA-Public Use
  Company Number: SG-BAYER-2012-091033

PATIENT
  Sex: Female

DRUGS (1)
  1. BETAFERON FOR INJECTION 0.25 MG/ML [Suspect]
     Dosage: UNK
     Dates: start: 20110114

REACTIONS (1)
  - Disease progression [None]
